FAERS Safety Report 4449180-2 (Version None)
Quarter: 2004Q3

REPORT INFORMATION
  Report Type: 
  Country: None (occurrence: None)
  Receive Date: 20040910
  Receipt Date: 20040831
  Transmission Date: 20050211
  Serious: Yes (Death, Hospitalization)
  Sender: FDA-Public Use
  Company Number: 2004053148

PATIENT
  Age: 86 Year
  Sex: Male

DRUGS (6)
  1. UNASYN [Suspect]
     Indication: PNEUMONIA ASPIRATION
     Dosage: 6 GRAM (3 GRAM, 2 IN 1 D), INTRAVENOUS
     Route: 042
     Dates: start: 20040604, end: 20040726
  2. TRIHEXYPHENIDYL HYDROCHLORIDE (TRIHEXYPHENDYL HYDROCHLORIDE) [Concomitant]
  3. MADOPAR (BENSERAZIDE HYDROCHLORIDE, LEVODOPA) [Concomitant]
  4. MIDODRINE HYDROCHLORIDE (MIDODRINE HYDROCHLORIDE) [Concomitant]
  5. MECOBALAMIN (MECOBALAMIN) [Concomitant]
  6. TIAPRIDE HYDROCHLORIDE (TIAPRIDE HYDROCHLORIDE) [Concomitant]

REACTIONS (5)
  - DELIRIUM [None]
  - GENERAL PHYSICAL CONDITION ABNORMAL [None]
  - HEPATITIS [None]
  - LIVER DISORDER [None]
  - MALNUTRITION [None]
